FAERS Safety Report 9736696 (Version 1)
Quarter: 2013Q4

REPORT INFORMATION
  Report Type: Spontaneous
  Country: US (occurrence: US)
  Receive Date: 20131206
  Receipt Date: 20131206
  Transmission Date: 20140711
  Serious: No
  Sender: FDA-Public Use
  Company Number: US-GILEAD-2009-0023574

PATIENT
  Sex: Female
  Weight: 81.65 kg

DRUGS (13)
  1. LETAIRIS [Suspect]
     Indication: PULMONARY ARTERIAL HYPERTENSION
     Route: 048
     Dates: start: 20090716, end: 20090806
  2. NASONEX [Suspect]
  3. DICYCLOMINE [Suspect]
  4. CIPRO [Suspect]
  5. LASIX [Suspect]
  6. AZATHIOPRINE [Suspect]
  7. IMDUR [Suspect]
  8. LANTUS [Suspect]
  9. BENAZEPRIL [Suspect]
  10. NOVOLOG [Suspect]
  11. GABAPENTIN [Suspect]
  12. ASPIRIN [Suspect]
  13. PLAVIX [Suspect]

REACTIONS (8)
  - Influenza like illness [Unknown]
  - Abdominal distension [Unknown]
  - Vomiting [Unknown]
  - Vision blurred [Unknown]
  - Musculoskeletal chest pain [Unknown]
  - Headache [Unknown]
  - Nasal congestion [Unknown]
  - Oropharyngeal pain [Unknown]
